FAERS Safety Report 8325242-4 (Version None)
Quarter: 2012Q2

REPORT INFORMATION
  Report Type: 
  Country: None (occurrence: None)
  Receive Date: 20120501
  Receipt Date: 20120416
  Transmission Date: 20120825
  Serious: Yes (Other)
  Sender: FDA-Public Use
  Company Number: CA-ROCHE-1043973

PATIENT
  Sex: Female
  Weight: 90 kg

DRUGS (7)
  1. PREDNISONE [Concomitant]
  2. LANSOPRAZOLE [Concomitant]
  3. BIRTH CONTROL PILL (UNK INGREDIENTS) [Concomitant]
  4. ACTEMRA [Suspect]
     Indication: JUVENILE ARTHRITIS
     Route: 042
     Dates: start: 20110518, end: 20120223
  5. SULFATRIM [Concomitant]
  6. TYLENOL ARTHRITIS [Concomitant]
  7. PERCOCET [Concomitant]
     Indication: PAIN
     Dosage: 4 PILLS
     Dates: start: 20120411, end: 20120411

REACTIONS (7)
  - MATERNAL EXPOSURE DURING PREGNANCY [None]
  - MUSCLE SPASMS [None]
  - SYSTEMIC LUPUS ERYTHEMATOSUS [None]
  - ABORTION SPONTANEOUS [None]
  - HUMAN CHORIONIC GONADOTROPIN DECREASED [None]
  - HAEMORRHAGE [None]
  - UNEVALUABLE EVENT [None]
